FAERS Safety Report 9264157 (Version 2)
Quarter: 2014Q1

REPORT INFORMATION
  Report Type: Report from Study
  Country: US (occurrence: US)
  Receive Date: 20130430
  Receipt Date: 20140123
  Transmission Date: 20141002
  Serious: Yes (Hospitalization, Other)
  Sender: FDA-Public Use
  Company Number: US-ALEXION PHARMACEUTICALS INC.-A201300912

PATIENT
  Sex: Male

DRUGS (2)
  1. SOLIRIS [Suspect]
     Indication: HAEMOLYTIC URAEMIC SYNDROME
     Dosage: 900 MG, UNK
     Route: 042
  2. SOLIRIS [Suspect]
     Dosage: 1200 MG, Q7
     Route: 042
     Dates: start: 20130405, end: 20130412

REACTIONS (5)
  - Renal failure [Unknown]
  - Blood creatinine increased [Recovering/Resolving]
  - Pulmonary oedema [Unknown]
  - Respiratory disorder [Recovering/Resolving]
  - Influenza like illness [Unknown]
